FAERS Safety Report 8281758 (Version 2)
Quarter: 2014Q4

REPORT INFORMATION
  Report Type: Spontaneous
  Country: US (occurrence: US)
  Receive Date: 20111209
  Receipt Date: 20141104
  Transmission Date: 20150529
  Serious: Yes (Hospitalization, Other)
  Sender: FDA-Public Use
  Company Number: US-GLAXOSMITHKLINE-B0724598A

PATIENT
  Age: 55 Year
  Sex: Female

DRUGS (1)
  1. AVANDAMET [Suspect]
     Active Substance: METFORMIN HYDROCHLORIDE\ROSIGLITAZONE MALEATE
     Indication: DIABETES MELLITUS
     Route: 048
     Dates: start: 20040602, end: 2006

REACTIONS (5)
  - Congestive cardiomyopathy [Unknown]
  - Coronary artery disease [Unknown]
  - Cardiac failure congestive [Not Recovered/Not Resolved]
  - Implantable defibrillator insertion [Unknown]
  - Bundle branch block left [Unknown]

NARRATIVE: CASE EVENT DATE: 200705
